FAERS Safety Report 6378640-2 (Version None)
Quarter: 2009Q3

REPORT INFORMATION
  Report Type: 
  Country: None (occurrence: None)
  Receive Date: 20090928
  Receipt Date: 20090915
  Transmission Date: 20100115
  Serious: Yes (Hospitalization)
  Sender: FDA-Public Use
  Company Number: US-ROCHE-643723

PATIENT
  Sex: Female
  Weight: 64.9 kg

DRUGS (2)
  1. PEGASYS [Suspect]
     Indication: HEPATITIS C
     Dosage: FORM: PRE-FILLED SYRINGE
     Route: 058
     Dates: start: 20090710, end: 20090710
  2. COPEGUS [Suspect]
     Indication: HEPATITIS C
     Dosage: DOSE: 1000 MG DIVIDED DOSES
     Route: 048
     Dates: start: 20090710, end: 20090715

REACTIONS (11)
  - ASTHENIA [None]
  - BACK PAIN [None]
  - BLOOD BILIRUBIN INCREASED [None]
  - DRUG HYPERSENSITIVITY [None]
  - FATIGUE [None]
  - HAEMATOCRIT DECREASED [None]
  - HAEMATURIA [None]
  - HAEMOGLOBIN DECREASED [None]
  - HYPERSENSITIVITY [None]
  - JAUNDICE [None]
  - NAUSEA [None]
